FAERS Safety Report 6305386-9 (Version None)
Quarter: 2009Q3

REPORT INFORMATION
  Report Type: 
  Country: None (occurrence: None)
  Receive Date: 20090807
  Receipt Date: 20090726
  Transmission Date: 20100115
  Serious: Yes (Hospitalization, Other)
  Sender: FDA-Public Use
  Company Number: A-US2009-24876

PATIENT
  Age: 45 Year
  Sex: Female

DRUGS (2)
  1. VENTAVIS [Suspect]
     Indication: PULMONARY ARTERIAL HYPERTENSION
     Dosage: RESPIRATORY; 10 UG, 5X/DAY, RESPIRATORY
     Route: 055
     Dates: start: 20090318, end: 20090322
  2. VENTAVIS [Suspect]
     Indication: PULMONARY ARTERIAL HYPERTENSION
     Dosage: RESPIRATORY; 10 UG, 5X/DAY, RESPIRATORY
     Route: 055
     Dates: start: 20090323, end: 20090601

REACTIONS (5)
  - BACK PAIN [None]
  - DRUG TOLERANCE DECREASED [None]
  - FLUSHING [None]
  - HEADACHE [None]
  - PARAESTHESIA [None]
